FAERS Safety Report 8530820 (Version 3)
Quarter: 2013Q4

REPORT INFORMATION
  Report Type: Spontaneous
  Country: US (occurrence: None)
  Receive Date: 20120326
  Receipt Date: 20131226
  Transmission Date: 20140711
  Serious: Yes (Hospitalization, Other)
  Sender: FDA-Public Use
  Company Number: PHEH2012US002195

PATIENT
  Age: 63 Year
  Sex: Male
  Weight: 115 kg

DRUGS (3)
  1. TASIGNA [Suspect]
     Indication: CHRONIC MYELOID LEUKAEMIA
     Dosage: 300 MG, BID, ORAL
     Route: 048
     Dates: start: 20120220, end: 20120220
  2. ASPIRIN (ACETYLSALICYLIC ACID) [Concomitant]
  3. NSAID^S (NO INGREDIENTS/SUBSTANCES) [Concomitant]

REACTIONS (2)
  - Gastrointestinal haemorrhage [None]
  - Gastric ulcer haemorrhage [None]
